FAERS Safety Report 6745104-3 (Version None)
Quarter: 2010Q2

REPORT INFORMATION
  Report Type: 
  Country: None (occurrence: None)
  Receive Date: 20100527
  Receipt Date: 20100521
  Transmission Date: 20101027
  Serious: Yes (Hospitalization)
  Sender: FDA-Public Use
  Company Number: GB-AMGEN-QUU414255

PATIENT
  Age: 56 Year
  Sex: Male
  Weight: 60 kg

DRUGS (14)
  1. ENBREL [Suspect]
     Indication: RHEUMATOID ARTHRITIS
     Route: 058
     Dates: start: 20100430, end: 20100511
  2. CALCICHEW [Concomitant]
     Dosage: UNKNOWN
  3. CLOPIDOGREL [Concomitant]
     Dosage: UNKNOWN
  4. DILTIAZEM [Concomitant]
     Dosage: UNKNOWN
  5. FOLIC ACID [Concomitant]
     Dosage: UNKNOWN
  6. VENTOLIN [Concomitant]
     Dosage: UNKNOWN
  7. ISMN [Concomitant]
     Dosage: UNKNOWN
  8. LISINOPRIL [Concomitant]
     Dosage: UNKNOWN
  9. METHOTREXATE [Concomitant]
     Dosage: UNKNOWN
  10. OXYBUTYNIN [Concomitant]
     Dosage: UNKNOWN
  11. RANITIDINE [Concomitant]
     Dosage: UNKNOWN
  12. SPIRIVA [Concomitant]
     Dosage: UNKNOWN
  13. ATORVASTATIN [Concomitant]
     Dosage: UNKNOWN
  14. GABAPENTIN [Concomitant]
     Dosage: UNKNOWN

REACTIONS (6)
  - CHEST PAIN [None]
  - DIZZINESS [None]
  - DYSPNOEA [None]
  - FEELING HOT [None]
  - LOSS OF CONSCIOUSNESS [None]
  - TREMOR [None]
